FAERS Safety Report 21783954 (Version 2)
Quarter: 2023Q1

REPORT INFORMATION
  Report Type: Spontaneous
  Country: US (occurrence: US)
  Receive Date: 20221227
  Receipt Date: 20230206
  Transmission Date: 20230418
  Serious: Yes (Other)
  Sender: FDA-Public Use
  Company Number: US-BAYER-2022P032826

PATIENT
  Age: 11 Year
  Sex: Male

DRUGS (2)
  1. KOVALTRY [Suspect]
     Active Substance: ANTIHEMOPHILIC FACTOR, HUMAN RECOMBINANT
     Indication: Factor VIII deficiency
     Dosage: INFUSE 1250 UNITS (1125-1375) SLOW IV ON MONDAY AND WEDNESDAY. INFUSE 1900 UNITS (1710-2090) SLOW IV
     Route: 042
     Dates: start: 202212
  2. KOVALTRY [Suspect]
     Active Substance: ANTIHEMOPHILIC FACTOR, HUMAN RECOMBINANT
     Indication: Factor VIII deficiency
     Dosage: PATIENT USED 1 DOSE TO TREAT RIGHT ANKLE BLEED
     Route: 042
     Dates: start: 20221212, end: 20221212

REACTIONS (1)
  - Haemarthrosis [None]

NARRATIVE: CASE EVENT DATE: 20221212
